FAERS Safety Report 13779871 (Version 1)
Quarter: 2017Q3

REPORT INFORMATION
  Report Type: Spontaneous
  Country: US (occurrence: US)
  Receive Date: 20170723
  Receipt Date: 20170723
  Transmission Date: 20171127
  Serious: No
  Sender: FDA-Public Use
  Company Number: US-B.I. PHARMACEUTICALS,INC./RIDGEFIELD-2017-BI-040482

PATIENT
  Sex: Male

DRUGS (2)
  1. FLOMAX [Suspect]
     Active Substance: TAMSULOSIN HYDROCHLORIDE
     Indication: BENIGN PROSTATIC HYPERPLASIA
     Dosage: ONE CAPSULE ONCE A DAY;  FORM STRENGTH: 0.4 MG; FORMULATION: CAPSULE? ADMINISTRATION CORRECT? NR(NOT
     Route: 048
     Dates: start: 2003
  2. FLOMAX [Suspect]
     Active Substance: TAMSULOSIN HYDROCHLORIDE
     Dosage: TWO CAPSULES ONCE DAILY;  FORM STRENGTH: 0.8 MG; FORMULATION: CAPSULE? ADMINISTRATION CORRECT? NR(NO
     Route: 048

REACTIONS (2)
  - Urinary retention [Recovered/Resolved]
  - Micturition urgency [Not Recovered/Not Resolved]
